FAERS Safety Report 6391239-7 (Version None)
Quarter: 2009Q4

REPORT INFORMATION
  Report Type: 
  Country: None (occurrence: None)
  Receive Date: 20091005
  Receipt Date: 20090923
  Transmission Date: 20100525
  Serious: Yes (Hospitalization)
  Sender: FDA-Public Use
  Company Number: 382341

PATIENT
  Age: 62 Year
  Sex: Male
  Weight: 86 kg

DRUGS (3)
  1. OXALIPLATIN INJECTION        (OXALIPLATIN) [Suspect]
     Indication: DRUG USE FOR UNKNOWN INDICATION
     Dosage: 172 MG, 1 DAY, INTRAVENOUS
     Route: 042
     Dates: start: 20090901, end: 20090901
  2. LEUCOVORIN CALCIUM [Concomitant]
  3. FLUOROURACIL [Concomitant]

REACTIONS (5)
  - CHILLS [None]
  - DIPLOPIA [None]
  - GAIT DISTURBANCE [None]
  - PRODUCT SUBSTITUTION ISSUE [None]
  - PYREXIA [None]
